FAERS Safety Report 11780536 (Version 2)
Quarter: 2015Q4

REPORT INFORMATION
  Report Type: Report from Study
  Country: CO (occurrence: CO)
  Receive Date: 20151126
  Receipt Date: 20151203
  Transmission Date: 20160305
  Serious: Yes (Hospitalization, Disabling)
  Sender: FDA-Public Use
  Company Number: CO-AMGEN-COLSL2015102439

PATIENT
  Age: 27 Year
  Sex: Female
  Weight: 63 kg

DRUGS (1)
  1. VECTIBIX [Suspect]
     Active Substance: PANITUMUMAB
     Indication: COLORECTAL CANCER METASTATIC
     Dosage: 420 MG, EVERY 2 WEEKS
     Route: 042
     Dates: start: 20150921

REACTIONS (7)
  - Somnolence [Not Recovered/Not Resolved]
  - Syncope [Recovered/Resolved]
  - Tonsillitis [Recovering/Resolving]
  - Pyrexia [Unknown]
  - Pruritus [Not Recovered/Not Resolved]
  - Rash [Not Recovered/Not Resolved]
  - Immune system disorder [Recovering/Resolving]

NARRATIVE: CASE EVENT DATE: 2015
